FAERS Safety Report 5898262-7 (Version None)
Quarter: 2008Q3

REPORT INFORMATION
  Report Type: 
  Country: None (occurrence: None)
  Receive Date: 20080925
  Receipt Date: 20070807
  Transmission Date: 20090109
  Serious: No
  Sender: FDA-Public Use
  Company Number: A0668986A

PATIENT

DRUGS (1)
  1. WELLBUTRIN XL [Suspect]
     Indication: DRUG USE FOR UNKNOWN INDICATION
     Dosage: 1TAB UNKNOWN
     Route: 048
     Dates: start: 20070601

REACTIONS (5)
  - ASTHENIA [None]
  - DISTURBANCE IN ATTENTION [None]
  - DRUG INEFFECTIVE [None]
  - FEELING OF DESPAIR [None]
  - PANIC ATTACK [None]
